FAERS Safety Report 11566705 (Version 1)
Quarter: 2015Q3

REPORT INFORMATION
  Report Type: Spontaneous
  Country: US (occurrence: US)
  Receive Date: 20150916
  Receipt Date: 20150916
  Transmission Date: 20151125
  Serious: No
  Sender: FDA-Public Use
  Company Number: US-ELI_LILLY_AND_COMPANY-US200906004788

PATIENT
  Sex: Female

DRUGS (1)
  1. FORTEO [Suspect]
     Active Substance: TERIPARATIDE
     Dates: start: 200904

REACTIONS (11)
  - Blood pressure decreased [Unknown]
  - Nervousness [Unknown]
  - Sluggishness [Unknown]
  - Rash [Unknown]
  - Injection site bruising [Unknown]
  - Burning sensation [Unknown]
  - Skin disorder [Unknown]
  - Dizziness [Unknown]
  - Fatigue [Unknown]
  - Laziness [Unknown]
  - Heart rate increased [Unknown]

NARRATIVE: CASE EVENT DATE: 2009
